FAERS Safety Report 21878863 (Version 2)
Quarter: 2023Q1

REPORT INFORMATION
  Report Type: Spontaneous
  Country: US (occurrence: US)
  Receive Date: 20230118
  Receipt Date: 20230322
  Transmission Date: 20230418
  Serious: No
  Sender: FDA-Public Use
  Company Number: US-PFIZER INC-202300016591

PATIENT
  Age: 56 Year
  Sex: Female

DRUGS (3)
  1. IBRANCE [Suspect]
     Active Substance: PALBOCICLIB
     Indication: HER2 negative breast cancer
     Dosage: ON DAYS 1-21 OF A 28 DAY CYCLE
     Route: 048
     Dates: start: 20230107
  2. FASLODEX [Concomitant]
     Active Substance: FULVESTRANT
     Dosage: UNK
  3. ENTECAVIR [Concomitant]
     Active Substance: ENTECAVIR
     Dosage: UNK

REACTIONS (7)
  - Tongue haemorrhage [Unknown]
  - Dysgeusia [Unknown]
  - Back pain [Unknown]
  - Arthralgia [Unknown]
  - Stomatitis [Unknown]
  - Tongue disorder [Unknown]
  - Tumour marker abnormal [Not Recovered/Not Resolved]

NARRATIVE: CASE EVENT DATE: 20230108
